FAERS Safety Report 7461753-1 (Version None)
Quarter: 2011Q2

REPORT INFORMATION
  Report Type: 
  Country: None (occurrence: None)
  Receive Date: 20110506
  Receipt Date: 20110426
  Transmission Date: 20111010
  Serious: Yes (Other)
  Sender: FDA-Public Use
  Company Number: GB-RANBAXY-2011R1-44008

PATIENT
  Age: 7 Year
  Sex: Female
  Weight: 21 kg

DRUGS (2)
  1. CODEINE SULFATE [Suspect]
     Indication: PAIN
     Dosage: 15 MG, UNK
     Route: 048
     Dates: start: 20110404, end: 20110404
  2. FOLIC ACID [Concomitant]
     Indication: HEREDITARY SPHEROCYTOSIS
     Dosage: 5 MG, UNK
     Route: 048
     Dates: start: 20040101

REACTIONS (2)
  - HALLUCINATION [None]
  - AGITATION [None]
